FAERS Safety Report 5880409-X (Version None)
Quarter: 2008Q3

REPORT INFORMATION
  Report Type: 
  Country: None (occurrence: None)
  Receive Date: 20080912
  Receipt Date: 20080812
  Transmission Date: 20090109
  Serious: No
  Sender: FDA-Public Use
  Company Number: US-ABBOTT-08P-163-0435962-00

PATIENT
  Sex: Female
  Weight: 55.842 kg

DRUGS (3)
  1. HUMIRA [Suspect]
     Indication: RHEUMATOID ARTHRITIS
     Route: 058
     Dates: start: 20051101
  2. HUMIRA [Suspect]
     Route: 058
     Dates: start: 20040601, end: 20050101
  3. HYDROXYCHLOROQUINE SULFATE [Concomitant]
     Indication: RHEUMATOID ARTHRITIS
     Route: 048

REACTIONS (6)
  - ABDOMINAL PAIN [None]
  - ASTHENIA [None]
  - COELIAC DISEASE [None]
  - DIZZINESS [None]
  - INFLUENZA LIKE ILLNESS [None]
  - TREMOR [None]
